FAERS Safety Report 20606111 (Version 1)
Quarter: 2022Q1

REPORT INFORMATION
  Report Type: Spontaneous
  Country: CN (occurrence: CN)
  Receive Date: 20220317
  Receipt Date: 20220317
  Transmission Date: 20220423
  Serious: Yes (Other)
  Sender: FDA-Public Use
  Company Number: CN-GYP-001037

PATIENT
  Age: 48 Year
  Sex: Male

DRUGS (8)
  1. PREDNISONE [Suspect]
     Active Substance: PREDNISONE
     Indication: Extranodal marginal zone B-cell lymphoma (MALT type) recurrent
     Dosage: 2 COURSES
     Route: 065
  2. RITUXIMAB [Suspect]
     Active Substance: RITUXIMAB
     Indication: Extranodal marginal zone B-cell lymphoma (MALT type) recurrent
     Route: 065
  3. VINCRISTINE [Suspect]
     Active Substance: VINCRISTINE
     Indication: Extranodal marginal zone B-cell lymphoma (MALT type) recurrent
     Route: 065
  4. CYCLOPHOSPHAMIDE [Suspect]
     Active Substance: CYCLOPHOSPHAMIDE
     Indication: Extranodal marginal zone B-cell lymphoma (MALT type) recurrent
     Route: 065
  5. LANSOPRAZOLE [Suspect]
     Active Substance: LANSOPRAZOLE
     Indication: Extranodal marginal zone B-cell lymphoma (MALT type) recurrent
     Route: 065
  6. BISMUTH [Suspect]
     Active Substance: BISMUTH
     Indication: Extranodal marginal zone B-cell lymphoma (MALT type) recurrent
     Route: 065
  7. AMOXICILLIN [Suspect]
     Active Substance: AMOXICILLIN
     Indication: Extranodal marginal zone B-cell lymphoma (MALT type) recurrent
     Route: 065
  8. METRONIDAZOLE [Suspect]
     Active Substance: METRONIDAZOLE
     Indication: Extranodal marginal zone B-cell lymphoma (MALT type) recurrent
     Route: 065

REACTIONS (3)
  - Extranodal marginal zone B-cell lymphoma (MALT type) recurrent [Recovered/Resolved]
  - Neoplasm progression [Recovered/Resolved]
  - Drug ineffective [Unknown]
